FAERS Safety Report 9470982 (Version 3)
Quarter: 2013Q4

REPORT INFORMATION
  Report Type: Spontaneous
  Country: DE (occurrence: DE)
  Receive Date: 20130822
  Receipt Date: 20131227
  Transmission Date: 20140711
  Serious: Yes (Death, Life-Threatening)
  Sender: FDA-Public Use
  Company Number: DE-JNJFOC-20130808309

PATIENT
  Age: 70 Year
  Sex: Female
  Weight: 70 kg

DRUGS (2)
  1. XEPLION [Suspect]
     Indication: SCHIZOPHRENIA
     Route: 030
     Dates: start: 20130726, end: 20130726
  2. XEPLION [Suspect]
     Indication: SCHIZOPHRENIA
     Route: 030
     Dates: start: 20130802, end: 20130802

REACTIONS (5)
  - Resuscitation [Fatal]
  - Sudden death [Fatal]
  - Cardiac disorder [Unknown]
  - Eating disorder [Unknown]
  - Vomiting [Unknown]
